FAERS Safety Report 10128462 (Version 1)
Quarter: 2014Q2

REPORT INFORMATION
  Report Type: Spontaneous
  Country: US (occurrence: None)
  Receive Date: 20140425
  Receipt Date: 20140425
  Transmission Date: 20141212
  Serious: No
  Sender: FDA-Public Use
  Company Number: None

PATIENT
  Age: 83 Year
  Sex: Male

DRUGS (1)
  1. ZYTIGA 250 MG JANSSEN BIOTECH [Suspect]
     Indication: PROSTATE CANCER
     Dosage: 250 MG ( 4 QD) QD PO
     Route: 048
     Dates: start: 201307

REACTIONS (1)
  - Gallbladder operation [None]
